FAERS Safety Report 8208181-9 (Version None)
Quarter: 2012Q1

REPORT INFORMATION
  Report Type: 
  Country: None (occurrence: None)
  Receive Date: 20120314
  Receipt Date: 20120308
  Transmission Date: 20120608
  Serious: Yes (Other)
  Sender: FDA-Public Use
  Company Number: PHHY2012DE020633

PATIENT
  Age: 58 Year
  Sex: Female

DRUGS (2)
  1. ZOMETA [Suspect]
     Dosage: 4 MG, UNK
     Route: 042
     Dates: start: 20090728
  2. ZOMETA [Suspect]
     Dosage: 4 MG, UNK
     Dates: start: 20110628

REACTIONS (5)
  - PAIN IN EXTREMITY [None]
  - TOOTHACHE [None]
  - RENAL PAIN [None]
  - TOOTH FRACTURE [None]
  - TOOTH DISORDER [None]
